FAERS Safety Report 17676628 (Version 1)
Quarter: 2020Q2

REPORT INFORMATION
  Report Type: Spontaneous
  Country: US (occurrence: US)
  Receive Date: 20200416
  Receipt Date: 20200416
  Transmission Date: 20200714
  Serious: No
  Sender: FDA-Public Use
  Company Number: US-BAYER-2020-059308

PATIENT
  Age: 58 Year
  Sex: Female

DRUGS (2)
  1. SYNTHROID [Concomitant]
     Active Substance: LEVOTHYROXINE SODIUM
     Dosage: UNK
  2. MIRALAX [Suspect]
     Active Substance: POLYETHYLENE GLYCOL 3350
     Indication: GASTROINTESTINAL DISORDER
     Dosage: I TOOK A COUPLE SWALLOW
     Route: 048
     Dates: start: 20200408, end: 20200408

REACTIONS (5)
  - Product odour abnormal [None]
  - Wrong technique in product usage process [None]
  - Incorrect product administration duration [Unknown]
  - Product taste abnormal [None]
  - Nasal discomfort [Recovered/Resolved]
